FAERS Safety Report 13467577 (Version 12)
Quarter: 2020Q1

REPORT INFORMATION
  Report Type: Spontaneous
  Country: US (occurrence: US)
  Receive Date: 20170421
  Receipt Date: 20200115
  Transmission Date: 20200409
  Serious: No
  Sender: FDA-Public Use
  Company Number: US-PFIZER INC-2017173705

PATIENT
  Age: 59 Year
  Sex: Female
  Weight: 108.8 kg

DRUGS (10)
  1. LYRICA [Suspect]
     Active Substance: PREGABALIN
     Indication: NEUROPATHY PERIPHERAL
  2. LYRICA [Suspect]
     Active Substance: PREGABALIN
     Indication: NEURALGIA
  3. LYRICA [Suspect]
     Active Substance: PREGABALIN
     Indication: PARAESTHESIA
     Dosage: 75 MG, THRICE A DAY
     Dates: start: 2009
  4. LYRICA [Suspect]
     Active Substance: PREGABALIN
     Indication: BURNING SENSATION
     Dosage: UNK, TWICE A DAY
  5. LYRICA [Suspect]
     Active Substance: PREGABALIN
     Indication: PAIN IN EXTREMITY
     Dosage: 75 MG, 3X/DAY
     Route: 048
     Dates: start: 20190806
  6. AMLODIPINE [Concomitant]
     Active Substance: AMLODIPINE BESYLATE
     Indication: CARDIAC DISORDER
     Dosage: 5 MG, DAILY (QD)
  7. AMLODIPINE [Concomitant]
     Active Substance: AMLODIPINE BESYLATE
     Indication: BLOOD PRESSURE ABNORMAL
  8. LYRICA [Suspect]
     Active Substance: PREGABALIN
     Indication: POLYARTHRITIS
  9. LYRICA [Suspect]
     Active Substance: PREGABALIN
     Indication: HYPOAESTHESIA
     Dosage: 75 MG, 3X/DAY, THRICE A DAY
     Route: 048
     Dates: start: 20160119
  10. LYRICA [Suspect]
     Active Substance: PREGABALIN
     Indication: ARTHRITIS

REACTIONS (20)
  - Nitrite urine present [Unknown]
  - Pain [Not Recovered/Not Resolved]
  - White blood cell count increased [Unknown]
  - Insomnia [Unknown]
  - Urine albumin/creatinine ratio increased [Unknown]
  - Blood parathyroid hormone increased [Unknown]
  - Intentional product misuse [Unknown]
  - Therapeutic product effect delayed [Recovering/Resolving]
  - Eye discharge [Unknown]
  - Urine leukocyte esterase positive [Unknown]
  - Protein urine present [Unknown]
  - Dry eye [Unknown]
  - Bacterial test positive [Unknown]
  - Blood urine present [Unknown]
  - Blood cholesterol increased [Unknown]
  - Panic reaction [Unknown]
  - Vision blurred [Unknown]
  - Visual impairment [Unknown]
  - White blood cells urine positive [Unknown]
  - Urinary sediment present [Unknown]

NARRATIVE: CASE EVENT DATE: 1998
